FAERS Safety Report 9858695 (Version 1)
Quarter: 2014Q1

REPORT INFORMATION
  Report Type: Spontaneous
  Country: US (occurrence: None)
  Receive Date: 20140130
  Receipt Date: 20140130
  Transmission Date: 20141002
  Serious: Yes (Hospitalization)
  Sender: FDA-Public Use
  Company Number: None

PATIENT
  Age: 43 Year
  Sex: Female
  Weight: 73.3 kg

DRUGS (3)
  1. ABRAXANE [Suspect]
  2. AVASTIN [Suspect]
  3. CARBOPLATIN [Suspect]

REACTIONS (1)
  - Groin infection [None]
